FAERS Safety Report 10150236 (Version 1)
Quarter: 2014Q2

REPORT INFORMATION
  Report Type: Spontaneous
  Country: US (occurrence: US)
  Receive Date: 20140502
  Receipt Date: 20140502
  Transmission Date: 20141212
  Serious: Yes (Hospitalization, Other)
  Sender: FDA-Public Use
  Company Number: US-UCBSA-119160

PATIENT
  Age: 9 Year
  Sex: Female
  Weight: 32.9 kg

DRUGS (11)
  1. VIMPAT [Suspect]
     Indication: COMPLEX PARTIAL SEIZURES
     Dosage: TITRATED UP SLOWLY
     Dates: start: 201401, end: 201401
  2. VIMPAT [Suspect]
     Indication: COMPLEX PARTIAL SEIZURES
     Dosage: STRENGTH: 100MG
     Route: 048
     Dates: start: 20140128
  3. VIMPAT [Suspect]
     Indication: COMPLEX PARTIAL SEIZURES
     Dosage: MORNING
     Dates: start: 201404
  4. KLONOPIN [Concomitant]
     Dates: start: 20100719
  5. KLONOPIN [Concomitant]
     Dates: start: 20140404
  6. KLONOPIN [Concomitant]
     Dosage: 0.5 MG IN THE AM AND 0.25 MG IN THE EVENING
     Dates: start: 20140409
  7. LEUCOVORIN [Concomitant]
     Indication: FOLATE DEFICIENCY
  8. DAILY ACTIVATED VITAMINS [Concomitant]
  9. DIASTATIN [Concomitant]
     Indication: EPILEPSY
     Dosage: PRN
  10. MIRALAX [Concomitant]
     Indication: CONSTIPATION
  11. TRILEPTAL [Concomitant]
     Dates: end: 201401

REACTIONS (25)
  - Respiratory arrest [Recovered/Resolved]
  - Apnoeic attack [Recovered/Resolved]
  - Complex partial seizures [Recovered/Resolved]
  - Postictal state [Recovered/Resolved]
  - Epistaxis [Not Recovered/Not Resolved]
  - Drop attacks [Not Recovered/Not Resolved]
  - Eye movement disorder [Unknown]
  - Speech disorder [Unknown]
  - Ataxia [Unknown]
  - Jaw disorder [Unknown]
  - Partial seizures with secondary generalisation [Recovered/Resolved]
  - Lip disorder [Not Recovered/Not Resolved]
  - Convulsion [Recovered/Resolved]
  - Hepatomegaly [Recovered/Resolved]
  - Dehydration [Not Recovered/Not Resolved]
  - Dysphagia [Not Recovered/Not Resolved]
  - Labile blood pressure [Not Recovered/Not Resolved]
  - Pressure of speech [Recovered/Resolved]
  - Hypomania [Recovered/Resolved]
  - Eating disorder [Not Recovered/Not Resolved]
  - Somnolence [Not Recovered/Not Resolved]
  - Migraine [Not Recovered/Not Resolved]
  - Eye pain [Not Recovered/Not Resolved]
  - Syncope [Unknown]
  - Merycism [Not Recovered/Not Resolved]
